FAERS Safety Report 9279231 (Version 2)
Quarter: 2013Q4

REPORT INFORMATION
  Report Type: Spontaneous
  Country: US (occurrence: US)
  Receive Date: 20130508
  Receipt Date: 20131219
  Transmission Date: 20140711
  Serious: Yes (Other)
  Sender: FDA-Public Use
  Company Number: CHPA2013US007638

PATIENT
  Age: 83 Year
  Sex: Female

DRUGS (2)
  1. EXCEDRIN EXTRA STRENGTH [Suspect]
     Indication: HEADACHE
     Dosage: 2 DF, PRN
     Route: 048
  2. CLARITIN [Concomitant]
     Indication: SEASONAL ALLERGY
     Dosage: UNK, UNK

REACTIONS (9)
  - Hydrocephalus [Recovering/Resolving]
  - Fall [Recovering/Resolving]
  - Gait disturbance [Recovering/Resolving]
  - Balance disorder [Recovering/Resolving]
  - Sensation of heaviness [Recovering/Resolving]
  - Abnormal behaviour [Recovering/Resolving]
  - Incontinence [Recovering/Resolving]
  - Headache [Recovering/Resolving]
  - Therapeutic response unexpected [Unknown]
